FAERS Safety Report 4666472-2 (Version None)
Quarter: 2005Q2

REPORT INFORMATION
  Report Type: 
  Country: None (occurrence: None)
  Receive Date: 20050518
  Receipt Date: 20050505
  Transmission Date: 20051028
  Serious: Yes (Other)
  Sender: FDA-Public Use
  Company Number: 26616

PATIENT
  Age: 40 Year
  Sex: Female

DRUGS (2)
  1. MAXAIR [Suspect]
     Indication: BRONCHITIS
     Dosage: (400 MCG, 6 TOTAL), RESPIRATORY (INHALATION)
     Route: 055
     Dates: start: 20050424, end: 20050425
  2. TEGRETOL [Suspect]
     Indication: CONVULSION

REACTIONS (4)
  - CONVULSION [None]
  - PAIN [None]
  - ROAD TRAFFIC ACCIDENT [None]
  - SELF-MEDICATION [None]
